FAERS Safety Report 6065739-3 (Version None)
Quarter: 2009Q1

REPORT INFORMATION
  Report Type: 
  Country: None (occurrence: None)
  Receive Date: 20090204
  Receipt Date: 20090126
  Transmission Date: 20090719
  Serious: Yes (Congenital Anomaly)
  Sender: FDA-Public Use
  Company Number: NL-JNJCH-2009002867

PATIENT

DRUGS (1)
  1. ASPIRIN [Suspect]
     Indication: DRUG EXPOSURE DURING PREGNANCY
     Dosage: TEXT:UNSPECIFIED
     Route: 064

REACTIONS (2)
  - CONGENITAL ANOMALY [None]
  - DRUG EXPOSURE DURING PREGNANCY [None]
